FAERS Safety Report 9196023 (Version 2)
Quarter: 2013Q2

REPORT INFORMATION
  Report Type: Report from Study
  Country: IT (occurrence: IT)
  Receive Date: 20130328
  Receipt Date: 20130429
  Transmission Date: 20140414
  Serious: Yes (Death, Hospitalization)
  Sender: FDA-Public Use
  Company Number: IT-TEVA-394659USA

PATIENT
  Age: 53 Year
  Sex: Male
  Weight: 72 kg

DRUGS (2)
  1. TREANDA [Suspect]
     Indication: PLASMA CELL MYELOMA
     Dates: start: 20130121, end: 20130128
  2. THALIDOMIDE [Suspect]
     Indication: PLASMA CELL MYELOMA
     Dates: start: 20130130, end: 20130217

REACTIONS (3)
  - Cerebral haemorrhage [Fatal]
  - Pyrexia [Fatal]
  - Pancytopenia [Fatal]
